FAERS Safety Report 15706619 (Version 1)
Quarter: 2018Q4

REPORT INFORMATION
  Report Type: Spontaneous
  Country: US (occurrence: US)
  Receive Date: 20181210
  Receipt Date: 20181210
  Transmission Date: 20190205
  Serious: Yes (Other)
  Sender: FDA-Public Use
  Company Number: US-TEVA-2018-US-983065

PATIENT
  Age: 77 Year
  Sex: Male

DRUGS (1)
  1. COPAXONE [Suspect]
     Active Substance: GLATIRAMER ACETATE
     Indication: MULTIPLE SCLEROSIS
     Route: 058
     Dates: start: 20170107

REACTIONS (3)
  - Joint range of motion decreased [Unknown]
  - Rotator cuff syndrome [Unknown]
  - Fall [Unknown]

NARRATIVE: CASE EVENT DATE: 201703
